FAERS Safety Report 14967319 (Version 1)
Quarter: 2018Q3

REPORT INFORMATION
  Report Type: Report from Study
  Country: AU (occurrence: AU)
  Receive Date: 20180604
  Receipt Date: 20180604
  Transmission Date: 20181010
  Serious: Yes (Death, Hospitalization, Other)
  Sender: FDA-Public Use
  Company Number: AU-CHEPLA-C20170871

PATIENT
  Age: 60 Year
  Sex: Female
  Weight: 61.9 kg

DRUGS (5)
  1. TRETINOIN. [Suspect]
     Active Substance: TRETINOIN
     Indication: ACUTE MYELOID LEUKAEMIA
     Dosage: 70MG, QD; 45 MG/M^2 ATRA
     Route: 048
     Dates: start: 20170926
  2. PIPERACILLIN/TAZOBACTUM (TAZOCIN) [Concomitant]
     Route: 042
  3. IMG?7289 [Suspect]
     Active Substance: INVESTIGATIONAL PRODUCT
     Indication: ACUTE MYELOID LEUKAEMIA
     Dosage: 375 MG, QD
     Route: 048
  4. IMG?7289 [Suspect]
     Active Substance: INVESTIGATIONAL PRODUCT
     Indication: ACUTE MYELOID LEUKAEMIA
     Dosage: 375 MG, QD; 6 MG/KG IMG?7289
     Route: 048
     Dates: start: 20170926
  5. PARACETAMOL [Concomitant]
     Active Substance: ACETAMINOPHEN

REACTIONS (7)
  - Product use in unapproved indication [Recovered/Resolved]
  - Febrile neutropenia [Recovered/Resolved]
  - Thrombocytopenia [Unknown]
  - Clostridium difficile colitis [Unknown]
  - Haemorrhage [Unknown]
  - Diarrhoea [Unknown]
  - Acute myeloid leukaemia [None]

NARRATIVE: CASE EVENT DATE: 20171004
